FAERS Safety Report 25487106 (Version 1)
Quarter: 2025Q2

REPORT INFORMATION
  Report Type: Spontaneous
  Country: IN (occurrence: IN)
  Receive Date: 20250627
  Receipt Date: 20250627
  Transmission Date: 20250717
  Serious: Yes (Other)
  Sender: AJANTA PHARMA USA INC
  Company Number: IN-AJANTA-2025AJA00083

PATIENT
  Sex: Male

DRUGS (6)
  1. DULOXETINE [Suspect]
     Active Substance: DULOXETINE
     Indication: Feeling cold
     Dates: start: 202308, end: 202404
  2. PREGABALIN [Suspect]
     Active Substance: PREGABALIN
     Indication: Pain in extremity
     Route: 048
     Dates: start: 2009, end: 202404
  3. Salbutamol-Budesonide [Concomitant]
     Route: 045
     Dates: start: 2009
  4. Torsemide-Spironolactone [Concomitant]
     Dates: start: 2022
  5. Tamsulosin-Dutasteride [Concomitant]
     Dates: start: 2023
  6. Linagliptan [Concomitant]
     Dates: start: 2023

REACTIONS (3)
  - Drug interaction [Recovered/Resolved]
  - Hallucination, visual [Recovered/Resolved]
  - Insomnia [Recovered/Resolved]

NARRATIVE: CASE EVENT DATE: 20231101
